FAERS Safety Report 17258302 (Version 1)
Quarter: 2020Q1

REPORT INFORMATION
  Report Type: Spontaneous
  Country: US (occurrence: US)
  Receive Date: 20200110
  Receipt Date: 20200110
  Transmission Date: 20200409
  Serious: No
  Sender: FDA-Public Use
  Company Number: US-GLENMARK PHARMACEUTICALS-2019GMK043148

PATIENT

DRUGS (1)
  1. FLUCONAZOLE. [Suspect]
     Active Substance: FLUCONAZOLE
     Indication: CANDIDA INFECTION
     Dosage: UNK; A YEAR AGO ONCE EVERY 3 DAYS
     Route: 048

REACTIONS (3)
  - Therapeutic response unexpected [Unknown]
  - Dizziness [Recovering/Resolving]
  - Product prescribing error [Unknown]
